FAERS Safety Report 5779500-8 (Version None)
Quarter: 2008Q2

REPORT INFORMATION
  Report Type: 
  Country: None (occurrence: None)
  Receive Date: 20080619
  Receipt Date: 20070612
  Transmission Date: 20081010
  Serious: No
  Sender: FDA-Public Use
  Company Number: US-ASTRAZENECA-2007UW05590

PATIENT
  Age: 66 Year
  Sex: Male
  Weight: 77.1 kg

DRUGS (2)
  1. ATACAND [Suspect]
     Indication: BLOOD PRESSURE ABNORMAL
     Route: 048
     Dates: start: 20060501
  2. ATACAND [Suspect]
     Route: 048
     Dates: start: 20060901

REACTIONS (1)
  - ERECTILE DYSFUNCTION [None]
